FAERS Safety Report 6873633-0 (Version None)
Quarter: 2010Q3

REPORT INFORMATION
  Report Type: 
  Country: None (occurrence: None)
  Receive Date: 20100723
  Receipt Date: 20100405
  Transmission Date: 20110219
  Serious: Yes (Other)
  Sender: FDA-Public Use
  Company Number: US-PFIZER INC-2009155821

PATIENT
  Sex: Female
  Weight: 64.399 kg

DRUGS (5)
  1. CHANTIX [Suspect]
     Indication: SMOKING CESSATION THERAPY
     Dosage: UNK
     Dates: start: 20090107, end: 20090101
  2. OXYCONTIN [Concomitant]
     Indication: PAIN MANAGEMENT
     Dosage: 40 MG, 1X/DAY
  3. SENOKOT [Concomitant]
     Dosage: UNK
  4. ELAVIL [Concomitant]
     Dosage: UNK
  5. AMITRIPTYLINE [Concomitant]
     Indication: ARTHRITIS
     Dosage: 25 MG, 1X/DAY

REACTIONS (7)
  - ABNORMAL DREAMS [None]
  - ANXIETY [None]
  - DEPRESSION [None]
  - DIARRHOEA [None]
  - MOOD SWINGS [None]
  - NAUSEA [None]
  - PANIC ATTACK [None]
